FAERS Safety Report 6270245-7 (Version None)
Quarter: 2009Q3

REPORT INFORMATION
  Report Type: 
  Country: None (occurrence: None)
  Receive Date: 20090716
  Receipt Date: 20090629
  Transmission Date: 20100115
  Serious: No
  Sender: FDA-Public Use
  Company Number: US-BAYER-200912023BCC

PATIENT
  Age: 66 Year
  Sex: Female
  Weight: 68 kg

DRUGS (3)
  1. ALEVE (CAPLET) [Suspect]
     Indication: INFLUENZA
     Dosage: TOTAL DAILY DOSE: 220 MG  UNIT DOSE: 220 MG
     Route: 048
     Dates: start: 20090628
  2. UNKNOWN CHOLESTEROL MEDICATIONS [Concomitant]
     Indication: DRUG USE FOR UNKNOWN INDICATION
     Route: 065
  3. DAILY MULTIVITAMIN [Concomitant]
     Indication: DRUG USE FOR UNKNOWN INDICATION
     Route: 065

REACTIONS (3)
  - CHILLS [None]
  - PRURITUS GENERALISED [None]
  - WHEEZING [None]
